FAERS Safety Report 8485357-7 (Version None)
Quarter: 2012Q3

REPORT INFORMATION
  Report Type: 
  Country: None (occurrence: None)
  Receive Date: 20120703
  Receipt Date: 20120629
  Transmission Date: 20120928
  Serious: Yes (Hospitalization)
  Sender: FDA-Public Use
  Company Number: DE-ROCHE-1071420

PATIENT
  Age: 76 Year
  Sex: Female
  Weight: 78 kg

DRUGS (6)
  1. AVASTIN [Suspect]
     Indication: OVARIAN CANCER
     Route: 042
     Dates: start: 20120220, end: 20120523
  2. AVASTIN [Suspect]
     Route: 042
  3. CARBOPLATIN [Suspect]
     Indication: OVARIAN CANCER
     Route: 042
     Dates: start: 20120220, end: 20120523
  4. CARBOPLATIN [Suspect]
     Route: 042
  5. PACLITAXEL [Suspect]
     Indication: OVARIAN CANCER
     Route: 042
     Dates: start: 20120220, end: 20120523
  6. PACLITAXEL [Suspect]
     Route: 042

REACTIONS (2)
  - SINUS TACHYCARDIA [None]
  - PULMONARY EMBOLISM [None]
